FAERS Safety Report 5091379-9 (Version None)
Quarter: 2006Q3

REPORT INFORMATION
  Report Type: 
  Country: None (occurrence: None)
  Receive Date: 20060727
  Receipt Date: 20060406
  Transmission Date: 20061208
  Serious: Yes (Other)
  Sender: FDA-Public Use
  Company Number: 2006003105

PATIENT
  Sex: Male

DRUGS (12)
  1. LYRICA [Suspect]
     Indication: DIABETIC NEUROPATHY
     Dosage: 50 MG (50 MG,1 IN 1 D)
     Dates: start: 20051030, end: 20051128
  2. TESTOSTERONE [Concomitant]
  3. PROPECIA [Concomitant]
  4. NEURONTIN [Concomitant]
  5. NORVASC [Concomitant]
  6. LASIX [Concomitant]
  7. PRINIVIL [Concomitant]
  8. PROCRIT [Concomitant]
  9. HUMALOG [Concomitant]
  10. ACETYSALICYCLIC ACID (ACETYLSALICYLIC ACID) [Concomitant]
  11. COREG [Concomitant]
  12. PROPAFENONE HCL [Concomitant]

REACTIONS (1)
  - ALOPECIA [None]
